FAERS Safety Report 8183208-1 (Version None)
Quarter: 2012Q1

REPORT INFORMATION
  Report Type: 
  Country: None (occurrence: None)
  Receive Date: 20120305
  Receipt Date: 20120229
  Transmission Date: 20120608
  Serious: Yes (Death, Hospitalization)
  Sender: FDA-Public Use
  Company Number: US-ASTELLAS-2012US001712

PATIENT
  Sex: Male
  Weight: 66 kg

DRUGS (4)
  1. PROGRAF [Suspect]
     Indication: BONE MARROW TRANSPLANT
     Dosage: 2 MG, BID
     Route: 048
     Dates: start: 20110426, end: 20120129
  2. RAPAMUNE [Concomitant]
     Indication: BONE MARROW TRANSPLANT
     Dosage: 1 MG, UID/QD
     Route: 048
     Dates: start: 20111012, end: 20120129
  3. PROGRAF [Suspect]
     Dosage: 0.5 MG, UID/QD
     Route: 048
     Dates: start: 20110426, end: 20120129
  4. MYCOPHENOLATE MOFETIL [Concomitant]
     Indication: BONE MARROW TRANSPLANT
     Dosage: 1000 MG, BID
     Route: 048
     Dates: start: 20110426, end: 20111012

REACTIONS (3)
  - HOSPITALISATION [None]
  - OFF LABEL USE [None]
  - DEATH [None]
